FAERS Safety Report 6730010-0 (Version None)
Quarter: 2010Q2

REPORT INFORMATION
  Report Type: 
  Country: None (occurrence: None)
  Receive Date: 20100513
  Receipt Date: 20100430
  Transmission Date: 20101027
  Serious: Yes (Hospitalization, Other)
  Sender: FDA-Public Use
  Company Number: 2010SCPR000368

PATIENT
  Age: 59 Year
  Sex: Female

DRUGS (1)
  1. DOXYCYCLINE [Suspect]
     Indication: MALARIA PROPHYLAXIS
     Dosage: 100 MG, QD

REACTIONS (10)
  - ABDOMINAL PAIN UPPER [None]
  - CYTOLYTIC HEPATITIS [None]
  - DIABETES MELLITUS [None]
  - DIARRHOEA [None]
  - DISEASE RECURRENCE [None]
  - DRUG RASH WITH EOSINOPHILIA AND SYSTEMIC SYMPTOMS [None]
  - FACE OEDEMA [None]
  - HUMAN HERPESVIRUS 6 INFECTION [None]
  - MONONUCLEOSIS SYNDROME [None]
  - VOMITING [None]
